FAERS Safety Report 12755051 (Version 3)
Quarter: 2016Q4

REPORT INFORMATION
  Report Type: Spontaneous
  Country: CO (occurrence: CO)
  Receive Date: 20160916
  Receipt Date: 20161128
  Transmission Date: 20170207
  Serious: Yes (Other)
  Sender: FDA-Public Use
  Company Number: CO-PFIZER INC-2016431564

PATIENT
  Age: 26 Year
  Sex: Female
  Weight: 69 kg

DRUGS (3)
  1. PRISTIQ EXTENDED-RELEASE [Suspect]
     Active Substance: DESVENLAFAXINE SUCCINATE
     Dosage: 100 MG, UNK
     Route: 048
     Dates: start: 201408, end: 201605
  2. PRISTIQ EXTENDED-RELEASE [Suspect]
     Active Substance: DESVENLAFAXINE SUCCINATE
     Indication: MAJOR DEPRESSION
     Dosage: 50 MG, UNK
     Route: 048
     Dates: start: 201406, end: 201408
  3. PRISTIQ EXTENDED-RELEASE [Suspect]
     Active Substance: DESVENLAFAXINE SUCCINATE
     Dosage: 50 MG, UNK
     Route: 048
     Dates: start: 201605, end: 201606

REACTIONS (24)
  - Vitamin D decreased [Recovering/Resolving]
  - Endocrine disorder [Unknown]
  - Temperature regulation disorder [Unknown]
  - Jaw disorder [Unknown]
  - Hirsutism [Unknown]
  - Bradyphrenia [Unknown]
  - Mobility decreased [Unknown]
  - Abnormal weight gain [Not Recovered/Not Resolved]
  - Dysaesthesia [Unknown]
  - Swelling [Not Recovered/Not Resolved]
  - Musculoskeletal stiffness [Not Recovered/Not Resolved]
  - Movement disorder [Not Recovered/Not Resolved]
  - Eye movement disorder [Not Recovered/Not Resolved]
  - Extrapyramidal disorder [Unknown]
  - Anti-thyroid antibody positive [Not Recovered/Not Resolved]
  - Dyskinesia [Not Recovered/Not Resolved]
  - Drug hypersensitivity [Unknown]
  - Inflammation [Not Recovered/Not Resolved]
  - Muscle rigidity [Not Recovered/Not Resolved]
  - Loss of consciousness [Not Recovered/Not Resolved]
  - Asthenia [Not Recovered/Not Resolved]
  - Syncope [Not Recovered/Not Resolved]
  - Suffocation feeling [Not Recovered/Not Resolved]
  - Dystonia [Unknown]

NARRATIVE: CASE EVENT DATE: 201506
